FAERS Safety Report 26005093 (Version 3)
Quarter: 2025Q4

REPORT INFORMATION
  Report Type: Report from Study
  Country: CA (occurrence: CA)
  Receive Date: 20251106
  Receipt Date: 20251215
  Transmission Date: 20260119
  Serious: Yes (Other)
  Sender: CELLTRION
  Company Number: CA-CELLTRION INC.-2025CA030572

PATIENT

DRUGS (9)
  1. INFLIXIMAB-DYYB [Suspect]
     Active Substance: INFLIXIMAB-DYYB
     Indication: Crohn^s disease
     Dosage: MAINTENANCE - 500 MG - EVERY 8 WEEKS
     Route: 042
     Dates: start: 20250822
  2. INFLIXIMAB-DYYB [Suspect]
     Active Substance: INFLIXIMAB-DYYB
     Dosage: MAINTENANCE - 500 MG - EVERY 8 WEEKS
     Route: 042
     Dates: start: 20250822
  3. INFLIXIMAB-DYYB [Suspect]
     Active Substance: INFLIXIMAB-DYYB
     Dosage: MAINTENANCE - 500 MG - EVERY 8 WEEKS
     Route: 042
     Dates: start: 20250904
  4. INFLIXIMAB-DYYB [Suspect]
     Active Substance: INFLIXIMAB-DYYB
     Dosage: OCTOBER 4TH / MAINTENANCE - 500 MG - EVERY 8 WEEKS
     Route: 042
  5. INFLIXIMAB-DYYB [Suspect]
     Active Substance: INFLIXIMAB-DYYB
     Dosage: MAINTENANCE - 500 MG - EVERY 8 WEEKS
     Route: 042
     Dates: start: 20251031
  6. INFLIXIMAB-DYYB [Suspect]
     Active Substance: INFLIXIMAB-DYYB
     Dosage: MAINTENANCE - 500 MG - EVERY 8 WEEKS
     Route: 042
     Dates: start: 20250822
  7. INFLIXIMAB-DYYB [Suspect]
     Active Substance: INFLIXIMAB-DYYB
     Dosage: MAINTENANCE - 500 MG - EVERY 8 WEEKS
     Route: 042
     Dates: start: 20251127
  8. URSODIOL [Concomitant]
     Active Substance: URSODIOL
     Indication: Product used for unknown indication
     Dosage: 500 MG
     Route: 065
  9. RINVOQ [Concomitant]
     Active Substance: UPADACITINIB
     Indication: Product used for unknown indication
     Route: 065

REACTIONS (9)
  - Weight increased [Unknown]
  - Harvey-Bradshaw index increased [Unknown]
  - Joint swelling [Unknown]
  - Arthralgia [Unknown]
  - Oedema peripheral [Unknown]
  - Intentional dose omission [Unknown]
  - Off label use [Unknown]
  - Therapy interrupted [Unknown]
  - Inappropriate schedule of product administration [Unknown]

NARRATIVE: CASE EVENT DATE: 20250101
